FAERS Safety Report 9402492 (Version 2)
Quarter: 2013Q3

REPORT INFORMATION
  Report Type: Report from Study
  Country: US (occurrence: US)
  Receive Date: 20130716
  Receipt Date: 20130717
  Transmission Date: 20140515
  Serious: Yes (Other)
  Sender: FDA-Public Use
  Company Number: US-ROCHE-1248674

PATIENT
  Sex: Female

DRUGS (11)
  1. XOLAIR [Suspect]
     Indication: PRODUCT USED FOR UNKNOWN INDICATION
     Dosage: SOLUTION
     Route: 065
     Dates: start: 20120707, end: 20130712
  2. VALTREX [Concomitant]
     Dosage: 2 FOR 3 DAYS AND 1 FOR 4 DAYS
     Route: 048
     Dates: start: 20101223
  3. VERAMYST [Concomitant]
     Dosage: 1 SPRAY EACH SIDE (1 DAY)
     Route: 045
  4. SINGULAIR [Concomitant]
     Dosage: AT BEDTIME
     Route: 048
     Dates: start: 20120926
  5. PROAIR (UNITED STATES) [Concomitant]
     Dosage: 108(90 BASE), 2 INHALATIONS (4 HOURS)
     Route: 065
     Dates: start: 20130104
  6. MONTELUKAST SODIUM [Concomitant]
     Dosage: AT BEDTIME
     Route: 048
     Dates: start: 20130104
  7. METHYLPREDNISOLONE [Concomitant]
     Dosage: 1 DAY
     Route: 048
     Dates: start: 20120618
  8. LIOTRIX [Concomitant]
     Dosage: 1 DAY, 30 (6.25-25) MG (MCG)
     Route: 048
  9. LEVOTHYROXINE SODIUM [Concomitant]
     Dosage: EVERY MORNING
     Route: 048
  10. EPIPEN [Concomitant]
     Dosage: 0.3 MG PER 0.3 ML, AS REQURIED
     Route: 065
     Dates: start: 20110713
  11. CROMOLYN SODIUM [Concomitant]
     Dosage: 2 SPRAYS EACH NASAL, AS NEEDED, 5.2 MG PER ACT AEROSOL SOLUTION
     Route: 045
     Dates: start: 20120709

REACTIONS (1)
  - Osteoporosis [Unknown]
